FAERS Safety Report 5819011-4 (Version None)
Quarter: 2008Q3

REPORT INFORMATION
  Report Type: 
  Country: None (occurrence: None)
  Receive Date: 20080721
  Receipt Date: 20080721
  Transmission Date: 20090109
  Serious: No
  Sender: FDA-Public Use
  Company Number: None

PATIENT
  Age: 29 Year
  Sex: Female
  Weight: 71.2147 kg

DRUGS (2)
  1. LEVAQUIN [Suspect]
     Indication: CONJUNCTIVITIS
     Dosage: 1 PILL TWICE DAILY PO
     Route: 048
     Dates: start: 20080319, end: 20080325
  2. LEVAQUIN [Suspect]
     Indication: SINUSITIS
     Dosage: 1 PILL TWICE DAILY PO
     Route: 048
     Dates: start: 20080319, end: 20080325

REACTIONS (6)
  - FALL [None]
  - IMPAIRED WORK ABILITY [None]
  - JOINT SPRAIN [None]
  - LIGAMENT RUPTURE [None]
  - PAIN [None]
  - TENDONITIS [None]
